FAERS Safety Report 5735149-4 (Version None)
Quarter: 2008Q2

REPORT INFORMATION
  Report Type: 
  Country: None (occurrence: None)
  Receive Date: 20080512
  Receipt Date: 20080430
  Transmission Date: 20081010
  Serious: Yes (Other)
  Sender: FDA-Public Use
  Company Number: DE-ROCHE-562288

PATIENT
  Age: 76 Year
  Sex: Male

DRUGS (1)
  1. VALIUM [Suspect]
     Dosage: OTHER INDICATION: ABNORMAL CIRCULATION NOS.
     Route: 065

REACTIONS (2)
  - CEREBROVASCULAR SPASM [None]
  - DRUG INEFFECTIVE [None]
